FAERS Safety Report 20671500 (Version 1)
Quarter: 2022Q2

REPORT INFORMATION
  Report Type: Spontaneous
  Country: RS (occurrence: RS)
  Receive Date: 20220404
  Receipt Date: 20220404
  Transmission Date: 20220721
  Serious: Yes (Death, Life-Threatening)
  Sender: FDA-Public Use
  Company Number: RS-PFIZER INC-202200456452

PATIENT
  Sex: Male

DRUGS (4)
  1. AVIBACTAM SODIUM\CEFTAZIDIME [Suspect]
     Active Substance: AVIBACTAM SODIUM\CEFTAZIDIME
     Indication: Pneumonia
     Dosage: 2.5 G, Q8HR
     Dates: start: 20211118, end: 20211120
  2. AVIBACTAM SODIUM\CEFTAZIDIME [Suspect]
     Active Substance: AVIBACTAM SODIUM\CEFTAZIDIME
     Indication: Pneumonia
  3. VANCOMYCIN HYDROCHLORIDE [Suspect]
     Active Substance: VANCOMYCIN HYDROCHLORIDE
     Indication: COVID-19 pneumonia
     Dosage: 1G/12H
     Dates: start: 20211118
  4. BARICITINIB [Suspect]
     Active Substance: BARICITINIB
     Indication: COVID-19 pneumonia
     Dosage: 4 MG
     Dates: start: 20211118

REACTIONS (5)
  - Respiratory failure [Fatal]
  - Septic shock [Fatal]
  - Cardiac arrest [Fatal]
  - Respiratory acidosis [Unknown]
  - Drug ineffective [Fatal]

NARRATIVE: CASE EVENT DATE: 20211121
